FAERS Safety Report 12974083 (Version 4)
Quarter: 2017Q1

REPORT INFORMATION
  Report Type: Spontaneous
  Country: US (occurrence: US)
  Receive Date: 20161124
  Receipt Date: 20170104
  Transmission Date: 20170428
  Serious: Yes (Other)
  Sender: FDA-Public Use
  Company Number: US-CIPLA LTD.-2016US21966

PATIENT

DRUGS (4)
  1. SPIRONOLACTONE. [Concomitant]
     Active Substance: SPIRONOLACTONE
     Dosage: 50 MG, UNK
     Route: 065
     Dates: start: 20160927
  2. TOPIRAMATE. [Suspect]
     Active Substance: TOPIRAMATE
     Dosage: 25 MG, QID
     Route: 065
     Dates: end: 20161019
  3. SPIRONOLACTONE. [Concomitant]
     Active Substance: SPIRONOLACTONE
     Dosage: 50 MG, QD
     Route: 065
  4. TOPIRAMATE. [Suspect]
     Active Substance: TOPIRAMATE
     Indication: MIGRAINE
     Dosage: 25 MG, UNK
     Route: 065
     Dates: start: 20160824, end: 20161019

REACTIONS (4)
  - Narcolepsy [Unknown]
  - Loss of consciousness [Unknown]
  - Respiration abnormal [Recovered/Resolved]
  - Oral mucosal blistering [Recovering/Resolving]
